FAERS Safety Report 4274655-9 (Version None)
Quarter: 2004Q1

REPORT INFORMATION
  Report Type: 
  Country: None (occurrence: None)
  Receive Date: 20040120
  Receipt Date: 20030217
  Transmission Date: 20041129
  Serious: Yes (Hospitalization)
  Sender: FDA-Public Use
  Company Number: US-BRISTOL-MYERS SQUIBB COMPANY-12187746

PATIENT
  Age: 37 Year
  Sex: Female

DRUGS (10)
  1. GATIFLOXACIN [Suspect]
     Route: 048
     Dates: start: 20011022, end: 20020101
  2. ATORVASTATIN [Suspect]
     Route: 048
     Dates: start: 20011008, end: 20020101
  3. COUMADIN [Suspect]
     Route: 048
     Dates: start: 20020101
  4. PAXIL [Concomitant]
     Route: 048
     Dates: start: 20020101
  5. ATENOLOL [Concomitant]
     Route: 048
     Dates: start: 20011004
  6. PLAVIX [Concomitant]
     Route: 048
     Dates: start: 20011004
  7. PRAVACHOL [Concomitant]
     Route: 048
     Dates: start: 20020101
  8. DILANTIN [Concomitant]
     Route: 048
     Dates: start: 20020101
  9. AMBIEN [Concomitant]
     Route: 048
     Dates: start: 20020101
  10. FOLIC ACID [Concomitant]
     Dosage: DOSAGE FORM = TABLET
     Route: 048
     Dates: start: 20020101

REACTIONS (10)
  - ANOREXIA [None]
  - ASTHENIA [None]
  - COAGULATION TIME PROLONGED [None]
  - DEPRESSION [None]
  - FATIGUE [None]
  - HYPOCOAGULABLE STATE [None]
  - HYPOKALAEMIA [None]
  - INTERNATIONAL NORMALISED RATIO INCREASED [None]
  - NAUSEA [None]
  - VOMITING [None]
